FAERS Safety Report 7553011-1 (Version None)
Quarter: 2011Q2

REPORT INFORMATION
  Report Type: 
  Country: None (occurrence: None)
  Receive Date: 20110616
  Receipt Date: 20110610
  Transmission Date: 20111010
  Serious: Yes (Other)
  Sender: FDA-Public Use
  Company Number: CH-GILEAD-2011-0040226

PATIENT
  Age: 52 Year
  Sex: Male

DRUGS (3)
  1. TRUVADA [Suspect]
     Indication: HIV INFECTION CDC CATEGORY B2
     Route: 048
  2. KALETRA [Suspect]
     Route: 048
  3. ZIAGEN [Suspect]
     Route: 048

REACTIONS (1)
  - PORPHYRIA NON-ACUTE [None]
